FAERS Safety Report 7821240-5 (Version None)
Quarter: 2011Q4

REPORT INFORMATION
  Report Type: 
  Country: None (occurrence: None)
  Receive Date: 20111018
  Receipt Date: 20111011
  Transmission Date: 20120403
  Serious: Yes (Hospitalization)
  Sender: FDA-Public Use
  Company Number: CA-NOVOPROD-337045

PATIENT

DRUGS (11)
  1. CRESTOR [Concomitant]
  2. AMLODIPINE [Concomitant]
  3. NEXIUM [Concomitant]
  4. VICTOZA [Suspect]
     Indication: PRODUCT USED FOR UNKNOWN INDICATION
     Dosage: 1.2 MG, QD
     Route: 058
  5. TRAZODONE HYDROCHLORIDE [Concomitant]
  6. VENTOLIN [Concomitant]
  7. LANTUS [Concomitant]
  8. BISOPROLOL [Concomitant]
  9. EFFEXOR XR [Concomitant]
  10. NOVORAPID [Concomitant]
  11. ASAPHEN [Concomitant]

REACTIONS (1)
  - ABDOMINAL PAIN [None]
